FAERS Safety Report 16394254 (Version 4)
Quarter: 2019Q4

REPORT INFORMATION
  Report Type: Report from Study
  Country: JP (occurrence: JP)
  Receive Date: 20190605
  Receipt Date: 20191030
  Transmission Date: 20200122
  Serious: Yes (Death, Other)
  Sender: FDA-Public Use
  Company Number: JP-ASTELLAS-2019JP010569

PATIENT
  Age: 75 Year
  Sex: Male

DRUGS (1)
  1. ASP2215 [Suspect]
     Active Substance: GILTERITINIB
     Indication: ACUTE MYELOID LEUKAEMIA RECURRENT
     Route: 048
     Dates: start: 20190415, end: 20190604

REACTIONS (3)
  - Bladder injury [Unknown]
  - Cystitis haemorrhagic [Unknown]
  - Urinary bladder haemorrhage [Fatal]

NARRATIVE: CASE EVENT DATE: 20190521
